FAERS Safety Report 26150998 (Version 1)
Quarter: 2025Q4

REPORT INFORMATION
  Report Type: Spontaneous
  Country: EU (occurrence: EU)
  Receive Date: 20251212
  Receipt Date: 20251212
  Transmission Date: 20260118
  Serious: Yes (Death, Hospitalization)
  Sender: BEIGENE
  Company Number: EU-BEONEMEDICINES-BGN-2025-022334

PATIENT
  Age: 72 Year
  Sex: Male

DRUGS (2)
  1. BRUKINSA [Suspect]
     Active Substance: ZANUBRUTINIB
     Indication: Chronic lymphocytic leukaemia
     Dosage: 160 MILLIGRAM, BID
  2. RITUXIMAB [Concomitant]
     Active Substance: RITUXIMAB
     Indication: Chronic lymphocytic leukaemia
     Dosage: 375 MILLIGRAM/SQ. METER, QWK FOR 4 DOSES

REACTIONS (2)
  - Necrotising fasciitis fungal [Fatal]
  - Fungal myositis [Fatal]
